FAERS Safety Report 8341847-9 (Version None)
Quarter: 2012Q2

REPORT INFORMATION
  Report Type: 
  Country: None (occurrence: None)
  Receive Date: 20120507
  Receipt Date: 20120426
  Transmission Date: 20120825
  Serious: Yes (Other)
  Sender: FDA-Public Use
  Company Number: US-ASTRAZENECA-2012SE17036

PATIENT
  Age: 58 Year
  Sex: Female

DRUGS (6)
  1. SEROQUEL [Suspect]
     Indication: ANXIETY
     Route: 048
  2. SEROQUEL [Suspect]
     Indication: PSYCHOMOTOR HYPERACTIVITY
     Route: 048
  3. SEROQUEL [Suspect]
     Indication: LOGORRHOEA
     Route: 048
  4. SEROQUEL [Suspect]
     Indication: BIPOLAR I DISORDER
     Route: 048
  5. SEROQUEL [Suspect]
     Indication: AGITATION
     Route: 048
  6. LEVOTHYROXINE SODIUM [Concomitant]
     Indication: THYROID DISORDER

REACTIONS (21)
  - ARTHROPATHY [None]
  - INFLUENZA [None]
  - THERAPEUTIC RESPONSE UNEXPECTED [None]
  - VISUAL ACUITY REDUCED [None]
  - LYME DISEASE [None]
  - HYPOMETABOLISM [None]
  - ADVERSE EVENT [None]
  - SOMATIC DELUSION [None]
  - VITAMIN D DECREASED [None]
  - THINKING ABNORMAL [None]
  - THYROID DISORDER [None]
  - STRESS [None]
  - PAIN [None]
  - BACK DISORDER [None]
  - OFF LABEL USE [None]
  - AUTOIMMUNE THYROIDITIS [None]
  - WEIGHT INCREASED [None]
  - HAEMORRHAGE [None]
  - MALAISE [None]
  - ANXIETY [None]
  - BLOOD COUNT ABNORMAL [None]
